FAERS Safety Report 6014786-6 (Version None)
Quarter: 2008Q4

REPORT INFORMATION
  Report Type: 
  Country: None (occurrence: None)
  Receive Date: 20081219
  Receipt Date: 20081215
  Transmission Date: 20090506
  Serious: Yes (Other)
  Sender: FDA-Public Use
  Company Number: PHHY2008GB26691

PATIENT
  Sex: Female

DRUGS (2)
  1. SANDOSTATIN LAR [Suspect]
     Indication: CARCINOID TUMOUR
  2. SANDOSTATIN [Suspect]
     Indication: CARCINOID TUMOUR
     Route: 058

REACTIONS (1)
  - THERAPEUTIC EMBOLISATION [None]
